FAERS Safety Report 22349415 (Version 2)
Quarter: 2023Q2

REPORT INFORMATION
  Report Type: Report from Study
  Country: US (occurrence: US)
  Receive Date: 20230522
  Receipt Date: 20230623
  Transmission Date: 20230722
  Serious: Yes (Other)
  Sender: FDA-Public Use
  Company Number: US-ASTELLAS-2022US021129

PATIENT
  Age: 83 Year
  Sex: Male

DRUGS (3)
  1. ENZALUTAMIDE [Suspect]
     Active Substance: ENZALUTAMIDE
     Indication: Prostate cancer
     Route: 048
     Dates: start: 20220215
  2. ENZALUTAMIDE [Suspect]
     Active Substance: ENZALUTAMIDE
     Indication: Prostate cancer
     Dosage: 160 MG, ONCE DAILY (2 X 80MG TABLETS)
     Route: 048
     Dates: start: 202204, end: 20221124
  3. ENZALUTAMIDE [Suspect]
     Active Substance: ENZALUTAMIDE
     Dosage: 80 MG, ONCE DAILY (1 X 80MG TABLETS)
     Route: 048
     Dates: start: 20221125

REACTIONS (12)
  - Blood iron decreased [Not Recovered/Not Resolved]
  - Seizure like phenomena [Recovering/Resolving]
  - Metamorphopsia [Unknown]
  - Dyschromatopsia [Unknown]
  - Performance status decreased [Unknown]
  - Dyskinesia [Recovering/Resolving]
  - Balance disorder [Not Recovered/Not Resolved]
  - Muscle spasms [Recovering/Resolving]
  - Asthenia [Recovering/Resolving]
  - Fatigue [Recovering/Resolving]
  - Blood pressure increased [Unknown]
  - Nausea [Unknown]

NARRATIVE: CASE EVENT DATE: 20220401
